FAERS Safety Report 23354561 (Version 3)
Quarter: 2024Q1

REPORT INFORMATION
  Report Type: Spontaneous
  Country: US (occurrence: US)
  Receive Date: 20240101
  Receipt Date: 20240328
  Transmission Date: 20240410
  Serious: No
  Sender: FDA-Public Use
  Company Number: US-SA-2023SA400411

PATIENT
  Age: 34 Year
  Sex: Male
  Weight: 85.72 kg

DRUGS (4)
  1. ALPROLIX [Suspect]
     Active Substance: EFTRENONACOG ALFA
     Indication: Factor IX deficiency
     Dosage: 9200 UNITS (8280-10120), QW FOR MAJOR BLEEDS ONCE AND REPEAT EVERY 6 TO 8 HOURS THEN GO TO ER
     Route: 042
     Dates: start: 202302
  2. ALPROLIX [Suspect]
     Active Substance: EFTRENONACOG ALFA
     Indication: Factor IX deficiency
     Dosage: 9200 UNITS (8280-10120), QW FOR MAJOR BLEEDS ONCE AND REPEAT EVERY 6 TO 8 HOURS THEN GO TO ER
     Route: 042
     Dates: start: 202302
  3. ALPROLIX [Suspect]
     Active Substance: EFTRENONACOG ALFA
     Dosage: 9200 UNITS (8280-10120), PRN FOR MAJOR BLEEDS ONCE AND REPEAT EVERY 6 TO 8 HOURS THEN GO TO ER
     Route: 042
     Dates: start: 202302
  4. ALPROLIX [Suspect]
     Active Substance: EFTRENONACOG ALFA
     Dosage: 9200 UNITS (8280-10120), PRN FOR MAJOR BLEEDS ONCE AND REPEAT EVERY 6 TO 8 HOURS THEN GO TO ER
     Route: 042
     Dates: start: 202302

REACTIONS (4)
  - Weight decreased [Unknown]
  - Haemorrhage [Recovered/Resolved]
  - Limb injury [Recovered/Resolved]
  - Traumatic haemorrhage [Recovered/Resolved]

NARRATIVE: CASE EVENT DATE: 20230101
